FAERS Safety Report 24995997 (Version 2)
Quarter: 2025Q1

REPORT INFORMATION
  Report Type: Spontaneous
  Country: US (occurrence: US)
  Receive Date: 20250221
  Receipt Date: 20250305
  Transmission Date: 20250409
  Serious: Yes (Hospitalization)
  Sender: SANOFI AVENTIS
  Company Number: US-SA-2025SA049769

PATIENT
  Sex: Male

DRUGS (1)
  1. ALTUVIIIO [Suspect]
     Active Substance: EFANESOCTOCOG ALFA
     Route: 065

REACTIONS (1)
  - Jaundice [Unknown]

NARRATIVE: CASE EVENT DATE: 20250122
